FAERS Safety Report 5775299-X (Version None)
Quarter: 2008Q3

REPORT INFORMATION
  Report Type: 
  Country: None (occurrence: None)
  Receive Date: 20080616
  Receipt Date: 20080616
  Transmission Date: 20090109
  Serious: Yes (Other)
  Sender: FDA-Public Use
  Company Number: None

PATIENT
  Age: 18 Year
  Sex: Female
  Weight: 56.6996 kg

DRUGS (1)
  1. PLAN B [Suspect]
     Indication: POST COITAL CONTRACEPTION
     Dosage: LEVONORGESTREL 1.5MG 1 EVERY 12HRS 1DAY PO
     Route: 048
     Dates: start: 20080326, end: 20080327

REACTIONS (4)
  - ACNE [None]
  - CANDIDIASIS [None]
  - DYSMENORRHOEA [None]
  - MOOD SWINGS [None]
